FAERS Safety Report 5485605-1 (Version None)
Quarter: 2007Q4

REPORT INFORMATION
  Report Type: 
  Country: None (occurrence: None)
  Receive Date: 20071011
  Receipt Date: 20071011
  Transmission Date: 20080405
  Serious: Yes (Other)
  Sender: FDA-Public Use
  Company Number: None

PATIENT
  Age: 47 Year
  Sex: Female
  Weight: 83.9154 kg

DRUGS (1)
  1. CHANTIX [Suspect]
     Indication: SMOKING CESSATION THERAPY
     Dosage: 1 MG 2XDAY PO
     Route: 048
     Dates: start: 20070601, end: 20070701

REACTIONS (11)
  - DIZZINESS [None]
  - FALL [None]
  - FATIGUE [None]
  - FEELING ABNORMAL [None]
  - ILL-DEFINED DISORDER [None]
  - MOTION SICKNESS [None]
  - NIGHTMARE [None]
  - PARAESTHESIA [None]
  - SLEEP DISORDER [None]
  - THYROID FUNCTION TEST ABNORMAL [None]
  - VERTIGO [None]
